FAERS Safety Report 20410698 (Version 1)
Quarter: 2022Q1

REPORT INFORMATION
  Report Type: Spontaneous
  Country: US (occurrence: None)
  Receive Date: 20220201
  Receipt Date: 20220201
  Transmission Date: 20220423
  Serious: Yes (Hospitalization)
  Sender: FDA-Public Use
  Company Number: 2022A048907

PATIENT
  Age: 74 Year
  Sex: Female

DRUGS (4)
  1. SEROQUEL [Suspect]
     Active Substance: QUETIAPINE FUMARATE
     Route: 048
  2. XANAX [Suspect]
     Active Substance: ALPRAZOLAM
     Route: 065
  3. IBRUTINIB [Suspect]
     Active Substance: IBRUTINIB
     Dosage: 280 MG CYCLIC (280 MG, CYCLE=28 DAYS, DAILY)
     Route: 048
     Dates: start: 20141210, end: 20160910
  4. PALBOCICLIB [Suspect]
     Active Substance: PALBOCICLIB
     Dosage: 75 MG CYCLIC (75 MG, DAILY ON DAYS 1-14)
     Route: 048
     Dates: start: 20141210, end: 20160910

REACTIONS (6)
  - Mental status changes [Recovered/Resolved]
  - Pyrexia [Recovered/Resolved]
  - Fall [Unknown]
  - Escherichia urinary tract infection [Unknown]
  - Clostridium difficile infection [Unknown]
  - Extra dose administered [Unknown]

NARRATIVE: CASE EVENT DATE: 20160901
